FAERS Safety Report 18769242 (Version 1)
Quarter: 2021Q1

REPORT INFORMATION
  Report Type: Report from Study
  Country: IN (occurrence: IN)
  Receive Date: 20210121
  Receipt Date: 20210121
  Transmission Date: 20210419
  Serious: Yes (Death, Other)
  Sender: FDA-Public Use
  Company Number: IN-ASTRAZENECA-2021A008688

PATIENT
  Age: 62 Year
  Sex: Female

DRUGS (7)
  1. AZTOR [Concomitant]
     Indication: BLOOD CHOLESTEROL
     Route: 048
     Dates: end: 20201228
  2. MONOTRATE [Concomitant]
     Indication: CARDIAC DISORDER
     Route: 048
     Dates: end: 20201228
  3. DYTOR PLUS [Concomitant]
     Indication: BLOOD PRESSURE MEASUREMENT
     Route: 048
     Dates: end: 20201228
  4. GLYCOMET GP1 [Concomitant]
     Indication: DIABETES MELLITUS
     Route: 048
     Dates: end: 20201228
  5. BRILINTA [Suspect]
     Active Substance: TICAGRELOR
     Indication: CARDIAC DISORDER
     Dosage: EVERY 12 HOURS
     Route: 048
     Dates: end: 20201228
  6. ASPIRIN. [Concomitant]
     Active Substance: ASPIRIN
     Indication: CARDIAC DISORDER
     Route: 048
     Dates: end: 20201228
  7. PROLOMET XL [Concomitant]
     Indication: BLOOD PRESSURE MEASUREMENT
     Route: 048
     Dates: end: 20201228

REACTIONS (4)
  - Asthenia [Unknown]
  - Death [Fatal]
  - Urinary tract infection [Unknown]
  - Hypotension [Unknown]

NARRATIVE: CASE EVENT DATE: 20201228
